FAERS Safety Report 9542817 (Version 2)
Quarter: 2013Q4

REPORT INFORMATION
  Report Type: Spontaneous
  Country: US (occurrence: US)
  Receive Date: 20130923
  Receipt Date: 20131101
  Transmission Date: 20140711
  Serious: No
  Sender: FDA-Public Use
  Company Number: US-PFIZER INC-2013272631

PATIENT
  Age: 80 Year
  Sex: Female
  Weight: 52.15 kg

DRUGS (5)
  1. CELEBREX [Suspect]
     Indication: OSTEOARTHRITIS
     Dosage: 100 MG, SINGLE
     Dates: start: 20130814, end: 20130814
  2. CELEBREX [Suspect]
     Indication: PAIN
  3. NORCO [Concomitant]
     Indication: OSTEOARTHRITIS
     Dosage: AS NEEDED
     Dates: start: 20130814
  4. NORCO [Concomitant]
     Indication: PAIN
  5. WARFARIN [Concomitant]
     Indication: CARDIAC DISORDER
     Dosage: 5 MG, 1X/DAY

REACTIONS (4)
  - Dyspnoea [Unknown]
  - Malaise [Unknown]
  - Fear [Unknown]
  - Limb discomfort [Unknown]
